FAERS Safety Report 10355303 (Version 2)
Quarter: 2014Q3

REPORT INFORMATION
  Report Type: Spontaneous
  Country: US (occurrence: US)
  Receive Date: 20140731
  Receipt Date: 20140731
  Transmission Date: 20150326
  Serious: Yes (Hospitalization, Other)
  Sender: FDA-Public Use
  Company Number: US-009507513-2010SP062574

PATIENT
  Sex: Female
  Weight: 57.15 kg

DRUGS (3)
  1. IMIPRAMINE HYDROCHLORIDE. [Suspect]
     Active Substance: IMIPRAMINE HYDROCHLORIDE
     Indication: MIGRAINE
     Dates: end: 20081204
  2. NUVARING [Suspect]
     Active Substance: ETHINYL ESTRADIOL\ETONOGESTREL
     Indication: CONTRACEPTION
     Route: 067
     Dates: start: 2006, end: 20081204
  3. NUVARING [Suspect]
     Active Substance: ETHINYL ESTRADIOL\ETONOGESTREL
     Indication: MENSTRUAL DISORDER

REACTIONS (30)
  - Anaphylactic shock [Unknown]
  - Transient ischaemic attack [Unknown]
  - Mental disorder [Unknown]
  - Emotional disorder [Unknown]
  - Vaginal discharge [Unknown]
  - Syncope [Unknown]
  - Cognitive disorder [Unknown]
  - Uterine polyp [Unknown]
  - Dyspepsia [Unknown]
  - Back pain [Unknown]
  - Transient ischaemic attack [Unknown]
  - Amnesia [Unknown]
  - Hypoaesthesia [Unknown]
  - Presyncope [Unknown]
  - Cerebrovascular accident [Unknown]
  - Intervertebral disc degeneration [Unknown]
  - Fear [Unknown]
  - Arthralgia [Unknown]
  - Lipids increased [Unknown]
  - Gastrointestinal viral infection [Unknown]
  - Dizziness [Unknown]
  - Orthostatic hypotension [Unknown]
  - Neck pain [Unknown]
  - Fall [Unknown]
  - Mental status changes [Unknown]
  - Weight increased [Unknown]
  - Cerebral artery stenosis [Unknown]
  - Fibrocystic breast disease [Unknown]
  - Hypoaesthesia [Unknown]
  - Depression [Not Recovered/Not Resolved]

NARRATIVE: CASE EVENT DATE: 200612
